FAERS Safety Report 5514685-X (Version None)
Quarter: 2007Q4

REPORT INFORMATION
  Report Type: 
  Country: None (occurrence: None)
  Receive Date: 20071113
  Receipt Date: 20071101
  Transmission Date: 20080405
  Serious: Yes (Disabling)
  Sender: FDA-Public Use
  Company Number: GB-PFIZER INC-2007085861

PATIENT
  Sex: Male
  Weight: 70 kg

DRUGS (5)
  1. SUTENT [Suspect]
     Indication: CLEAR CELL CARCINOMA OF THE KIDNEY
     Route: 048
  2. PREDNISOLONE [Concomitant]
     Route: 048
  3. PARACETAMOL [Concomitant]
     Indication: PAIN
     Route: 048
  4. GRANISETRON [Concomitant]
     Indication: MALAISE
     Route: 048
  5. DEXAMETHASONE [Concomitant]
     Dosage: DAILY DOSE:6MG
     Route: 048

REACTIONS (2)
  - ALVEOLITIS [None]
  - DYSPNOEA [None]
